FAERS Safety Report 18995674 (Version 1)
Quarter: 2021Q1

REPORT INFORMATION
  Report Type: Spontaneous
  Country: US (occurrence: US)
  Receive Date: 20210310
  Receipt Date: 20210310
  Transmission Date: 20210420
  Serious: Yes (Hospitalization, Other)
  Sender: FDA-Public Use
  Company Number: US-LUPIN PHARMACEUTICALS INC.-2021-03039

PATIENT
  Age: 50 Year
  Sex: Female

DRUGS (1)
  1. SULFAMETHOXAZOLE AND TRIMETHOPRIM [Suspect]
     Active Substance: SULFAMETHOXAZOLE\TRIMETHOPRIM
     Indication: NASOPHARYNGITIS
     Dosage: UNK?TOOK TWO DOSES
     Route: 065

REACTIONS (3)
  - Dermatitis bullous [Recovered/Resolved]
  - Rash [Recovered/Resolved]
  - Fixed eruption [Recovered/Resolved]
